FAERS Safety Report 18280688 (Version 2)
Quarter: 2020Q4

REPORT INFORMATION
  Report Type: Spontaneous
  Country: JP (occurrence: JP)
  Receive Date: 20200918
  Receipt Date: 20201012
  Transmission Date: 20210113
  Serious: Yes (Other)
  Sender: FDA-Public Use
  Company Number: JP-SA-2020SA251598

PATIENT

DRUGS (3)
  1. FEXOFENADINA SANIK 60MG [Suspect]
     Active Substance: FEXOFENADINE HYDROCHLORIDE
     Dosage: 1 DF, 1X
     Route: 048
     Dates: start: 20200914
  2. FEXOFENADINA SANIK 60MG [Suspect]
     Active Substance: FEXOFENADINE HYDROCHLORIDE
     Indication: URTICARIA
     Dosage: 1 DF, 1X
     Route: 048
     Dates: start: 20200914
  3. RESTAMIN [DIPHENHYDRAMINE] [Concomitant]
     Indication: URTICARIA
     Dosage: Q.S. SEVERAL TIMES
     Route: 061

REACTIONS (1)
  - Syncope [Recovered/Resolved]

NARRATIVE: CASE EVENT DATE: 20200914
